FAERS Safety Report 7439265-0 (Version None)
Quarter: 2011Q2

REPORT INFORMATION
  Report Type: 
  Country: None (occurrence: None)
  Receive Date: 20110427
  Receipt Date: 20090316
  Transmission Date: 20111010
  Serious: Yes (Hospitalization, Other)
  Sender: FDA-Public Use
  Company Number: US-BAYER-200915568NA

PATIENT
  Age: 61 Year
  Sex: Male
  Weight: 83.9 kg

DRUGS (24)
  1. TRASYLOL [Suspect]
     Dosage: 50 ML/HR INFUSION RATE
     Route: 042
     Dates: start: 20030307, end: 20030307
  2. LANOXIN [Concomitant]
     Route: 048
  3. ISUPREL [Concomitant]
     Dosage: UNK
     Route: 042
     Dates: start: 20030307
  4. EPINEPHRINE [Concomitant]
     Dosage: UNK
     Dates: start: 20030307
  5. RED BLOOD CELLS [Concomitant]
     Dosage: 3 U, UNK
  6. TRASYLOL [Suspect]
     Indication: HEART TRANSPLANT
     Dosage: 200 ML, BOLUS
     Route: 042
     Dates: start: 20030307, end: 20030307
  7. ACETYLSALICYLIC ACID SRT [Concomitant]
     Route: 048
  8. IMDUR [Concomitant]
     Route: 048
  9. COUMADIN [Concomitant]
     Route: 048
  10. PROTAMINE SULFATE [Concomitant]
     Dosage: 600 MG, CARDIAC BYPASS PUMP
     Dates: start: 20030307
  11. LASIX [Concomitant]
     Route: 048
  12. CEFAZOLIN [Concomitant]
     Dosage: 2 G, UNK
     Route: 042
     Dates: start: 20030307
  13. NOREPINEPHRINE BITARTRATE [Concomitant]
     Dosage: UNK
     Route: 042
     Dates: start: 20030307
  14. NEO-SYNEPHRINOL [Concomitant]
     Dosage: UNK
     Route: 042
     Dates: start: 20030307, end: 20030309
  15. PANCURONIUM BROMIDE [Concomitant]
     Dosage: UNK
     Dates: start: 20030307
  16. ZOCOR [Concomitant]
     Route: 048
  17. COREG [Concomitant]
     Route: 048
  18. MILRINONE [Concomitant]
     Dosage: UNK
     Route: 042
     Dates: start: 20030307, end: 20030310
  19. HEPARIN [Concomitant]
     Dosage: 32000 U, UNK
     Route: 042
     Dates: start: 20030307
  20. MANNITOL [Concomitant]
     Dosage: 50 G, UNK
     Route: 042
     Dates: start: 20030307
  21. INSULIN [Concomitant]
     Dosage: UNK
     Route: 042
     Dates: start: 20030307
  22. NITROGLYCERIN [Concomitant]
     Dosage: UNK
     Route: 042
     Dates: start: 20030307
  23. FRESH FROZEN PLASMA [Concomitant]
     Dosage: 11 U, UNK
     Dates: start: 20030307
  24. CELEBREX [Concomitant]
     Route: 048

REACTIONS (10)
  - INJURY [None]
  - CEREBROVASCULAR ACCIDENT [None]
  - ANXIETY [None]
  - ANHEDONIA [None]
  - PARAPLEGIA [None]
  - UNEVALUABLE EVENT [None]
  - FEAR [None]
  - DEPRESSION [None]
  - RENAL FAILURE [None]
  - PAIN [None]
